FAERS Safety Report 6613611-X (Version None)
Quarter: 2010Q1

REPORT INFORMATION
  Report Type: 
  Country: None (occurrence: None)
  Receive Date: 20100304
  Receipt Date: 20100224
  Transmission Date: 20100710
  Serious: Yes (Other)
  Sender: FDA-Public Use
  Company Number: US-ROCHE-684578

PATIENT
  Sex: Female

DRUGS (1)
  1. BONIVA [Suspect]
     Indication: DRUG USE FOR UNKNOWN INDICATION
     Route: 065

REACTIONS (6)
  - ARTHRALGIA [None]
  - IMMOBILE [None]
  - MOBILITY DECREASED [None]
  - MYALGIA [None]
  - PAIN [None]
  - WALKING AID USER [None]
